FAERS Safety Report 8992724 (Version 2)
Quarter: 2013Q1

REPORT INFORMATION
  Report Type: Report from Study
  Country: JP (occurrence: JP)
  Receive Date: 20130101
  Receipt Date: 20130311
  Transmission Date: 20140127
  Serious: Yes (Hospitalization, Other)
  Sender: FDA-Public Use
  Company Number: JP-ROCHE-1141311

PATIENT
  Age: 70 Year
  Sex: Male

DRUGS (46)
  1. TOCILIZUMAB [Suspect]
     Indication: RHEUMATOID ARTHRITIS
     Route: 041
     Dates: start: 20080509, end: 20080926
  2. TOCILIZUMAB [Suspect]
     Indication: RHEUMATOID ARTHRITIS
     Route: 041
     Dates: start: 20081024, end: 20090314
  3. TOCILIZUMAB [Suspect]
     Indication: RHEUMATOID ARTHRITIS
     Dosage: DOSAGE IS UNCERTAIN.
     Route: 041
     Dates: start: 20090601, end: 20090601
  4. TOCILIZUMAB [Suspect]
     Indication: RHEUMATOID ARTHRITIS
     Route: 041
     Dates: start: 20090701, end: 20090701
  5. TOCILIZUMAB [Suspect]
     Indication: RHEUMATOID ARTHRITIS
     Route: 041
     Dates: start: 20090729, end: 20091022
  6. TOCILIZUMAB [Suspect]
     Indication: RHEUMATOID ARTHRITIS
     Route: 041
     Dates: start: 20091119, end: 20100922
  7. TOCILIZUMAB [Suspect]
     Indication: RHEUMATOID ARTHRITIS
     Route: 041
     Dates: start: 20101204, end: 20110205
  8. TOCILIZUMAB [Suspect]
     Indication: RHEUMATOID ARTHRITIS
     Route: 041
     Dates: start: 20110420
  9. BREDININ [Suspect]
     Indication: RHEUMATOID ARTHRITIS
     Route: 048
     Dates: end: 20110406
  10. PREDNISOLONE [Suspect]
     Indication: RHEUMATOID ARTHRITIS
     Route: 048
     Dates: end: 20080508
  11. PREDNISOLONE [Suspect]
     Indication: RHEUMATOID ARTHRITIS
     Route: 048
     Dates: start: 20080509, end: 20080829
  12. PREDNISOLONE [Suspect]
     Indication: RHEUMATOID ARTHRITIS
     Route: 048
     Dates: start: 20080830, end: 2009
  13. PREDNISOLONE [Suspect]
     Indication: RHEUMATOID ARTHRITIS
     Route: 048
     Dates: start: 2009, end: 20090501
  14. PREDNISOLONE [Suspect]
     Indication: RHEUMATOID ARTHRITIS
     Route: 048
     Dates: start: 20090519, end: 20090602
  15. PREDNISOLONE [Suspect]
     Indication: RHEUMATOID ARTHRITIS
     Route: 048
     Dates: start: 20090603, end: 20090616
  16. PREDNISOLONE [Suspect]
     Indication: RHEUMATOID ARTHRITIS
     Route: 048
     Dates: start: 20090617, end: 20090630
  17. PREDNISOLONE [Suspect]
     Indication: RHEUMATOID ARTHRITIS
     Route: 048
     Dates: start: 20090701, end: 20090923
  18. BAKTAR [Suspect]
     Indication: PNEUMONIA
     Route: 048
     Dates: start: 20090411, end: 20090420
  19. BAKTAR [Suspect]
     Indication: PNEUMONIA
     Route: 048
     Dates: start: 20090421, end: 20090422
  20. BAKTAR [Suspect]
     Indication: PNEUMONIA
     Route: 048
     Dates: start: 20090501, end: 20090501
  21. LOXONIN [Concomitant]
     Indication: RHEUMATOID ARTHRITIS
     Route: 048
  22. BEZATOL SR [Concomitant]
     Route: 048
  23. LUDIOMIL [Concomitant]
     Route: 048
  24. LUDIOMIL [Concomitant]
     Route: 048
  25. MYSLEE [Concomitant]
     Route: 048
  26. FUNGIZONE [Concomitant]
     Route: 048
  27. TAKEPRON [Concomitant]
     Indication: PROPHYLAXIS
     Route: 048
     Dates: start: 20090502
  28. AMLODIN [Concomitant]
     Route: 048
  29. TROXIPIDE [Concomitant]
     Route: 048
  30. DEPAS [Concomitant]
     Route: 048
  31. MEROPEN (JAPAN) [Concomitant]
     Indication: PNEUMONIA
     Route: 042
     Dates: start: 20090411, end: 20090414
  32. FUNGUARD [Concomitant]
     Indication: PNEUMONIA
     Route: 042
     Dates: start: 20090411, end: 20090414
  33. URINORM [Concomitant]
     Route: 048
  34. CONIEL [Concomitant]
     Route: 048
  35. MUCOSTA [Concomitant]
     Route: 048
  36. SOLU-MEDROL [Concomitant]
     Indication: RHEUMATOID ARTHRITIS
     Route: 042
     Dates: start: 20090502, end: 20090503
  37. SOLU-MEDROL [Concomitant]
     Indication: RHEUMATOID ARTHRITIS
     Route: 042
     Dates: start: 20090504, end: 20090505
  38. PREDONINE [Concomitant]
     Indication: RHEUMATOID ARTHRITIS
     Route: 042
     Dates: start: 20090506, end: 20090507
  39. PREDONINE [Concomitant]
     Indication: RHEUMATOID ARTHRITIS
     Route: 042
     Dates: start: 20090508, end: 20090511
  40. PREDONINE [Concomitant]
     Indication: RHEUMATOID ARTHRITIS
     Route: 042
     Dates: start: 20090512, end: 20090518
  41. PREDONINE [Concomitant]
     Route: 048
     Dates: start: 20101109, end: 20110107
  42. PREDONINE [Concomitant]
     Route: 065
     Dates: start: 20110108, end: 20110304
  43. PREDONINE [Concomitant]
     Route: 048
     Dates: start: 20110305, end: 20110318
  44. PREDONINE [Concomitant]
     Route: 048
     Dates: start: 20110319, end: 20110405
  45. PREDONINE [Concomitant]
     Route: 048
     Dates: start: 20110406, end: 20110517
  46. OZEX [Concomitant]
     Indication: PNEUMONIA
     Route: 048
     Dates: start: 20110319, end: 20110404

REACTIONS (6)
  - Interstitial lung disease [Recovered/Resolved]
  - Renal impairment [Unknown]
  - Anaphylactic reaction [Recovered/Resolved]
  - Intestinal obstruction [Recovered/Resolved]
  - Pancreatitis acute [Recovered/Resolved]
  - Oesophagitis [Recovered/Resolved]
